FAERS Safety Report 8785750 (Version 2)
Quarter: 2012Q4

REPORT INFORMATION
  Report Type: Report from Study
  Country: US (occurrence: US)
  Receive Date: 20120914
  Receipt Date: 20121001
  Transmission Date: 20130627
  Serious: Yes (Other)
  Sender: FDA-Public Use
  Company Number: US-JNJFOC-20120705731

PATIENT
  Sex: Female

DRUGS (7)
  1. REMICADE [Suspect]
     Indication: RHEUMATOID ARTHRITIS
     Route: 042
     Dates: end: 20120524
  2. METHOTREXATE [Concomitant]
     Indication: RHEUMATOID ARTHRITIS
     Route: 065
  3. PLAQUENIL [Concomitant]
     Indication: RHEUMATOID ARTHRITIS
     Route: 065
  4. FOLIC ACID [Concomitant]
     Indication: RHEUMATOID ARTHRITIS
     Route: 065
  5. ETODOLAC [Concomitant]
     Indication: OSTEOARTHRITIS
     Route: 065
  6. CELEXA [Concomitant]
     Indication: ANXIETY
     Route: 065
  7. CALCIUM AND VIT D [Concomitant]
     Route: 065

REACTIONS (2)
  - Impaired healing [Recovered/Resolved]
  - Infected skin ulcer [Recovered/Resolved]
